FAERS Safety Report 7517187-4 (Version None)
Quarter: 2011Q2

REPORT INFORMATION
  Report Type: 
  Country: None (occurrence: None)
  Receive Date: 20110601
  Receipt Date: 20110525
  Transmission Date: 20111010
  Serious: Yes (Hospitalization)
  Sender: FDA-Public Use
  Company Number: US-US-EMD SERONO, INC.-230763J10USA

PATIENT
  Sex: Male

DRUGS (5)
  1. REBIF [Suspect]
     Route: 058
     Dates: start: 20100101, end: 20100101
  2. RISPERIDONE [Suspect]
  3. VALIUM [Suspect]
  4. REBIF [Suspect]
     Indication: MULTIPLE SCLEROSIS
     Route: 058
     Dates: start: 20091001, end: 20100101
  5. REBIF [Suspect]
     Route: 058
     Dates: start: 20100101, end: 20110101

REACTIONS (4)
  - ASTHENIA [None]
  - HYPOTENSION [None]
  - LETHARGY [None]
  - FATIGUE [None]
